FAERS Safety Report 20888944 (Version 1)
Quarter: 2022Q2

REPORT INFORMATION
  Report Type: Spontaneous
  Country: BR (occurrence: BR)
  Receive Date: 20220530
  Receipt Date: 20220530
  Transmission Date: 20220721
  Serious: Yes (Other)
  Sender: FDA-Public Use
  Company Number: BR-BoehringerIngelheim-2022-BI-172882

PATIENT
  Age: 64 Year
  Sex: Female
  Weight: 60 kg

DRUGS (1)
  1. CLONIDINE [Suspect]
     Active Substance: CLONIDINE
     Indication: Hypertension
     Dosage: (ATENSINA COMPRIMIDOS, 0,100 MG, 1 COMPRIMIDO
     Route: 048
     Dates: start: 20220505, end: 20220505

REACTIONS (3)
  - Cardiogenic shock [Recovered/Resolved]
  - Nightmare [Recovered/Resolved]
  - Product administration interrupted [Unknown]

NARRATIVE: CASE EVENT DATE: 20220505
